FAERS Safety Report 8145239-7 (Version None)
Quarter: 2012Q1

REPORT INFORMATION
  Report Type: 
  Country: None (occurrence: None)
  Receive Date: 20120217
  Receipt Date: 20120214
  Transmission Date: 20120608
  Serious: No
  Sender: FDA-Public Use
  Company Number: US-PFIZER INC-2012040937

PATIENT
  Sex: Female

DRUGS (3)
  1. ADVIL CONGESTION RELIEF [Suspect]
     Indication: NASAL CONGESTION
  2. ADVIL CONGESTION RELIEF [Suspect]
     Indication: NASAL OEDEMA
  3. ADVIL CONGESTION RELIEF [Suspect]
     Indication: SINUS HEADACHE
     Dosage: UNK

REACTIONS (3)
  - DYSPNOEA [None]
  - SNEEZING [None]
  - DRUG INEFFECTIVE [None]
